FAERS Safety Report 9271004 (Version 2)
Quarter: 2013Q2

REPORT INFORMATION
  Report Type: Spontaneous
  Country: CA (occurrence: CA)
  Receive Date: 20130506
  Receipt Date: 20130514
  Transmission Date: 20140414
  Serious: No
  Sender: FDA-Public Use
  Company Number: CA-JNJFOC-20130417745

PATIENT
  Age: 74 Year
  Sex: Male
  Weight: 44.45 kg

DRUGS (2)
  1. NICORETTE INHALER [Suspect]
     Route: 065
  2. NICORETTE INHALER [Suspect]
     Indication: SMOKING CESSATION THERAPY
     Dosage: 2 AND HALF PER DAY
     Route: 065
     Dates: start: 201303

REACTIONS (2)
  - Incorrect route of drug administration [Not Recovered/Not Resolved]
  - Product quality issue [Unknown]
